FAERS Safety Report 12425819 (Version 2)
Quarter: 2016Q2

REPORT INFORMATION
  Report Type: Spontaneous
  Country: GB (occurrence: GB)
  Receive Date: 20160601
  Receipt Date: 20160620
  Transmission Date: 20160815
  Serious: Yes (Hospitalization, Disabling)
  Sender: FDA-Public Use
  Company Number: GB-PFIZER INC-2016281516

PATIENT
  Age: 72 Year
  Sex: Female
  Weight: 59.41 kg

DRUGS (1)
  1. DEPO-MEDRONE [Suspect]
     Active Substance: METHYLPREDNISOLONE
     Dosage: 120 MG, UNK
     Route: 051
     Dates: start: 20150316

REACTIONS (7)
  - Rash [Unknown]
  - Localised infection [Unknown]
  - Urinary incontinence [Unknown]
  - Skin ulcer [Unknown]
  - Abdominal distension [Not Recovered/Not Resolved]
  - Abasia [Unknown]
  - Product lot number issue [Unknown]
